FAERS Safety Report 8734060 (Version 2)
Quarter: 2012Q4

REPORT INFORMATION
  Report Type: 
  Country: US (occurrence: US)
  Receive Date: 20120821
  Receipt Date: 20120928
  Transmission Date: 20130627
  Serious: No
  Sender: FDA-Public Use
  Company Number: US-ELI_LILLY_AND_COMPANY-US201208003253

PATIENT
  Sex: Female

DRUGS (3)
  1. HUMALOG LISPRO [Suspect]
     Indication: DIABETES MELLITUS
     Dosage: UNK, unknown
  2. DRUG USED IN DIABETES [Concomitant]
     Route: 048
  3. LEVEMIR [Concomitant]

REACTIONS (3)
  - Insulin resistance [Unknown]
  - Drug ineffective [Unknown]
  - Blood glucose abnormal [Unknown]
